FAERS Safety Report 16743375 (Version 1)
Quarter: 2019Q3

REPORT INFORMATION
  Report Type: Spontaneous
  Country: US (occurrence: US)
  Receive Date: 20190827
  Receipt Date: 20190827
  Transmission Date: 20191005
  Serious: No
  Sender: FDA-Public Use
  Company Number: US-PAREXEL-2019US004355

PATIENT

DRUGS (1)
  1. ELIGARD [Suspect]
     Active Substance: LEUPROLIDE ACETATE
     Indication: PANCREATIC CARCINOMA
     Dosage: 45 MG, 6 MONTH DOSE
     Route: 065
     Dates: start: 20190502

REACTIONS (1)
  - Wrong product administered [Unknown]

NARRATIVE: CASE EVENT DATE: 20190502
